FAERS Safety Report 4695116-9 (Version None)
Quarter: 2005Q2

REPORT INFORMATION
  Report Type: 
  Country: None (occurrence: None)
  Receive Date: 20050617
  Receipt Date: 20050613
  Transmission Date: 20051028
  Serious: Yes (Hospitalization)
  Sender: FDA-Public Use
  Company Number: ZONI002176

PATIENT
  Age: 80 Year
  Sex: Female

DRUGS (1)
  1. ZONISAMIDE [Suspect]
     Dosage: 400 MG, 2 IN 1 D, ORAL
     Route: 048
     Dates: start: 20050510

REACTIONS (3)
  - HERPES SIMPLEX [None]
  - RASH [None]
  - STOMATITIS [None]
